FAERS Safety Report 4602444-1 (Version None)
Quarter: 2005Q1

REPORT INFORMATION
  Report Type: 
  Country: None (occurrence: None)
  Receive Date: 20050307
  Receipt Date: 20050224
  Transmission Date: 20050727
  Serious: Yes (Other)
  Sender: FDA-Public Use
  Company Number: 200510045BWH

PATIENT
  Age: 68 Year
  Sex: Male
  Weight: 76.2043 kg

DRUGS (3)
  1. LEVITRA [Suspect]
     Indication: ERECTILE DYSFUNCTION
     Dosage: 20 MG , TOTAL DAILY, ORAL
     Route: 048
     Dates: start: 20040801, end: 20041101
  2. LEVITRA [Suspect]
     Indication: PROSTATECTOMY
     Dosage: 20 MG , TOTAL DAILY, ORAL
     Route: 048
     Dates: start: 20040801, end: 20041101
  3. TAMBOCOR [Concomitant]

REACTIONS (2)
  - ATRIAL FIBRILLATION [None]
  - CONDITION AGGRAVATED [None]
